FAERS Safety Report 5641044-1 (Version None)
Quarter: 2008Q1

REPORT INFORMATION
  Report Type: 
  Country: None (occurrence: None)
  Receive Date: 20080227
  Receipt Date: 20080220
  Transmission Date: 20080703
  Serious: Yes (Life-Threatening, Hospitalization)
  Sender: FDA-Public Use
  Company Number: JP-ASTRAZENECA-2007SE06652

PATIENT
  Age: 18852 Day
  Sex: Male
  Weight: 72 kg

DRUGS (1)
  1. BLOPRESS TABLETS 8 [Suspect]
     Indication: HYPERTENSION
     Route: 048
     Dates: start: 20070516, end: 20070516

REACTIONS (1)
  - CEREBRAL INFARCTION [None]
